FAERS Safety Report 16949226 (Version 1)
Quarter: 2019Q4

REPORT INFORMATION
  Report Type: Spontaneous
  Country: IT (occurrence: IT)
  Receive Date: 20191023
  Receipt Date: 20191023
  Transmission Date: 20200122
  Serious: Yes (Hospitalization)
  Sender: FDA-Public Use
  Company Number: IT-AUROBINDO-AUR-APL-2019-068372

PATIENT
  Age: 68 Year
  Sex: Female
  Weight: 75 kg

DRUGS (2)
  1. CARBOPLATIN. [Suspect]
     Active Substance: CARBOPLATIN
     Indication: UTERINE NEOPLASM
     Dosage: 330 MILLIGRAM, TOTAL
     Route: 042
     Dates: start: 20191010, end: 20191010
  2. GEMCITABINE. [Concomitant]
     Active Substance: GEMCITABINE
     Indication: UTERINE NEOPLASM
     Dosage: 1500 MILLIGRAM, TOTAL
     Route: 042
     Dates: start: 20191010, end: 20191010

REACTIONS (2)
  - Rash [Recovering/Resolving]
  - Feeling hot [Recovering/Resolving]

NARRATIVE: CASE EVENT DATE: 20191010
